FAERS Safety Report 8269350 (Version 2)
Quarter: 2013Q3

REPORT INFORMATION
  Report Type: Report from Study
  Country: US (occurrence: US)
  Receive Date: 20111130
  Receipt Date: 20130823
  Transmission Date: 20140515
  Serious: Yes (Other)
  Sender: FDA-Public Use
  Company Number: US-BAYER-2011-114846

PATIENT
  Sex: 0

DRUGS (3)
  1. ACETYLSALICYLIC ACID (} 100 MG) [Suspect]
     Indication: ATRIAL FIBRILLATION
     Dosage: DAILY DOSE 325 MG
     Route: 048
  2. WARFARIN [Suspect]
     Indication: ATRIAL FIBRILLATION
     Dosage: FIXED-DOSE 1 TO 3 MG PER DAY
  3. ANTIBIOTICS [Suspect]

REACTIONS (1)
  - Urinary bladder haemorrhage [None]
